FAERS Safety Report 10065272 (Version 1)
Quarter: 2014Q1

REPORT INFORMATION
  Report Type: Spontaneous
  Country: US (occurrence: None)
  Receive Date: 20140328
  Receipt Date: 20140328
  Transmission Date: 20141002
  Serious: No
  Sender: FDA-Public Use
  Company Number: CABO-14003887

PATIENT
  Age: 76 Year
  Sex: Male

DRUGS (1)
  1. COMETRIQ (CABOZANTINIB) CAPSULE [Suspect]
     Indication: PROSTATE CANCER
     Route: 048
     Dates: start: 20131105, end: 201401

REACTIONS (2)
  - Blood test abnormal [None]
  - Off label use [None]
